FAERS Safety Report 14631441 (Version 1)
Quarter: 2018Q1

REPORT INFORMATION
  Report Type: Spontaneous
  Country: RU (occurrence: RU)
  Receive Date: 20180313
  Receipt Date: 20180313
  Transmission Date: 20180509
  Serious: Yes (Hospitalization, Other)
  Sender: FDA-Public Use
  Company Number: RU-ASTRAZENECA-2018SE31315

PATIENT
  Age: 62 Year
  Sex: Female
  Weight: 78 kg

DRUGS (3)
  1. THROMBO ASS [Concomitant]
     Active Substance: ASPIRIN
  2. BRILINTA [Suspect]
     Active Substance: TICAGRELOR
     Indication: MYOCARDIAL INFARCTION
     Route: 048
     Dates: start: 20171029
  3. BISOPROLOL [Concomitant]
     Active Substance: BISOPROLOL

REACTIONS (3)
  - Blood cholesterol increased [Unknown]
  - Myocardial infarction [Recovered/Resolved]
  - Vascular stent occlusion [Recovered/Resolved]

NARRATIVE: CASE EVENT DATE: 201712
